FAERS Safety Report 9548690 (Version 1)
Quarter: 2013Q2

REPORT INFORMATION
  Report Type: Spontaneous
  Country: US (occurrence: None)
  Receive Date: 20130605
  Receipt Date: 20130605
  Transmission Date: 20140414
  Serious: Yes (Other)
  Sender: FDA-Public Use
  Company Number: ADE13-008

PATIENT
  Age: 26 Year
  Sex: Female
  Weight: 49 kg

DRUGS (9)
  1. MIDAZOLAM HCL [Suspect]
     Indication: LAPAROTOMY
     Dosage: 2 MG X2 IV PUSH
     Route: 042
     Dates: start: 20130413, end: 20130413
  2. PHENYLEPHRINE [Concomitant]
  3. ONDANSETRON [Concomitant]
  4. METRONIDAZOLE [Concomitant]
  5. PROPOFOL [Concomitant]
  6. FENTANYL [Concomitant]
  7. SUCCINYLCHOLINE [Concomitant]
  8. ROCURONIUM [Concomitant]
  9. CEFOTETAN [Concomitant]

REACTIONS (2)
  - Hypertension [None]
  - Bradycardia [None]
